FAERS Safety Report 9779119 (Version 2)
Quarter: 2014Q2

REPORT INFORMATION
  Report Type: Spontaneous
  Country: US (occurrence: US)
  Receive Date: 20131223
  Receipt Date: 20140616
  Transmission Date: 20141212
  Serious: No
  Sender: FDA-Public Use
  Company Number: US-ENDO PHARMACEUTICALS INC.-OPCR20130383

PATIENT
  Age: 39 Year
  Sex: Female

DRUGS (2)
  1. OPANA ER [Suspect]
     Indication: PAIN
     Route: 048
     Dates: start: 201310
  2. OPANA ER [Suspect]
     Route: 048
     Dates: end: 201310

REACTIONS (3)
  - Inappropriate schedule of drug administration [Unknown]
  - Drug effect decreased [Recovered/Resolved]
  - Drug ineffective [Not Recovered/Not Resolved]
